FAERS Safety Report 14929045 (Version 4)
Quarter: 2018Q3

REPORT INFORMATION
  Report Type: Spontaneous
  Country: CA (occurrence: CA)
  Receive Date: 20180523
  Receipt Date: 20180823
  Transmission Date: 20181010
  Serious: Yes (Other)
  Sender: FDA-Public Use
  Company Number: CA-CELLTRION INC.-2017CA014719

PATIENT

DRUGS (15)
  1. INFLECTRA [Suspect]
     Active Substance: INFLIXIMAB-DYYB
     Dosage: 600 MG, UNK FOR THE NEXT 3 INFUSIONS
     Route: 042
     Dates: start: 20180402, end: 20180402
  2. INFLECTRA [Suspect]
     Active Substance: INFLIXIMAB-DYYB
     Dosage: 700 MG, CYCLIC (EVERY 6 WEEKS); INTRAVENOUS
     Route: 042
     Dates: start: 20180629
  3. PREGABALIN. [Concomitant]
     Active Substance: PREGABALIN
     Dosage: 50 MG, TID
     Route: 065
  4. INFLECTRA [Suspect]
     Active Substance: INFLIXIMAB-DYYB
     Indication: ANKYLOSING SPONDYLITIS
     Dosage: 500 MG, CYCLIC, EVERY 0,2,6 AND 8 WEEKS
     Route: 042
     Dates: start: 20171113
  5. PANTOPRAZOLE [Concomitant]
     Active Substance: PANTOPRAZOLE
     Dosage: 40 MG, DAILY
     Route: 065
     Dates: start: 2017
  6. INFLECTRA [Suspect]
     Active Substance: INFLIXIMAB-DYYB
     Dosage: 500 MG(EVERY 0,2,6 AND THEN EVERY 8 WEEK), CYCLIC
     Route: 042
     Dates: start: 20171227
  7. INFLECTRA [Suspect]
     Active Substance: INFLIXIMAB-DYYB
     Dosage: 500 MG(EVERY 8 WEEKS)
     Route: 042
     Dates: start: 20180219
  8. INFLECTRA [Suspect]
     Active Substance: INFLIXIMAB-DYYB
     Dosage: 700 MG, CYCLIC (EVERY 6 WEEKS); INTRAVENOUS
     Route: 042
     Dates: start: 20180813
  9. INFLECTRA [Suspect]
     Active Substance: INFLIXIMAB-DYYB
     Dosage: 700 MG, CYCLIC (EVERY 6 WEEKS); INTRAVENOUS
     Route: 042
     Dates: start: 20180629
  10. NAPROSYN [Concomitant]
     Active Substance: NAPROXEN
     Dosage: UNK
     Dates: start: 2017
  11. ENBREL [Concomitant]
     Active Substance: ETANERCEPT
     Dosage: UNK
     Route: 065
     Dates: start: 201606
  12. INFLECTRA [Suspect]
     Active Substance: INFLIXIMAB-DYYB
     Dosage: 500 MG, CYCLIC,500 MG EVERY 0,2,6 AND THEN EVERY 8 WEEKS
     Route: 042
     Dates: start: 20171127
  13. INFLECTRA [Suspect]
     Active Substance: INFLIXIMAB-DYYB
     Dosage: 700 MG, CYCLIC (EVERY 6 WEEKS); INTRAVENOUS
     Route: 042
     Dates: start: 20180514
  14. INFLECTRA [Suspect]
     Active Substance: INFLIXIMAB-DYYB
     Dosage: 600 MG, UNK, FOR THE NEXT3 INFUSIONS; INTRAVENOUS
     Route: 042
     Dates: start: 20180402, end: 20180402
  15. HYDROMORPH CONTIN (HYDROMORPHONE HYDROCHLORIDE) [Concomitant]
     Dosage: UNK
     Dates: start: 2017

REACTIONS (14)
  - Condition aggravated [Recovering/Resolving]
  - Dry skin [Not Recovered/Not Resolved]
  - Inappropriate schedule of drug administration [Unknown]
  - Stab wound [Unknown]
  - Product use issue [Unknown]
  - Drug effect incomplete [Not Recovered/Not Resolved]
  - Blood pressure fluctuation [Unknown]
  - Product use issue [Unknown]
  - Pruritus [Recovered/Resolved]
  - Wound haemorrhage [Unknown]
  - Fatigue [Recovering/Resolving]
  - Erythema [Not Recovered/Not Resolved]
  - Eczema [Unknown]
  - Swelling [Not Recovered/Not Resolved]

NARRATIVE: CASE EVENT DATE: 20171114
